FAERS Safety Report 13831240 (Version 4)
Quarter: 2017Q4

REPORT INFORMATION
  Report Type: Report from Study
  Country: US (occurrence: US)
  Receive Date: 20170803
  Receipt Date: 20171116
  Transmission Date: 20180320
  Serious: Yes (Hospitalization)
  Sender: FDA-Public Use
  Company Number: US-ALEXION PHARMACEUTICALS INC.-A201708715

PATIENT
  Age: 36 Year
  Sex: Male

DRUGS (1)
  1. SOLIRIS [Suspect]
     Active Substance: ECULIZUMAB
     Indication: ATYPICAL HAEMOLYTIC URAEMIC SYNDROME
     Dosage: 1200 MG, Q2W
     Route: 042

REACTIONS (12)
  - White blood cell count increased [Unknown]
  - Abdominal pain [Unknown]
  - Pyrexia [Unknown]
  - Injection site warmth [Unknown]
  - Back pain [Unknown]
  - Infusion site pain [Unknown]
  - Flank pain [Not Recovered/Not Resolved]
  - Blood potassium decreased [Unknown]
  - Vomiting [Unknown]
  - Fatigue [Unknown]
  - Gallbladder disorder [Not Recovered/Not Resolved]
  - Nausea [Unknown]

NARRATIVE: CASE EVENT DATE: 2017
